FAERS Safety Report 4749226-8 (Version None)
Quarter: 2005Q3

REPORT INFORMATION
  Report Type: 
  Country: None (occurrence: None)
  Receive Date: 20050817
  Receipt Date: 20050805
  Transmission Date: 20060218
  Serious: Yes (Life-Threatening, Hospitalization)
  Sender: FDA-Public Use
  Company Number: HQWYE768908AUG05

PATIENT
  Age: 51 Year
  Sex: Male

DRUGS (8)
  1. RAPAMUNE [Suspect]
     Indication: PROPHYLAXIS AGAINST TRANSPLANT REJECTION
     Dosage: SEE IMAGE
     Route: 048
     Dates: start: 20041127, end: 20041130
  2. RAPAMUNE [Suspect]
     Indication: PROPHYLAXIS AGAINST TRANSPLANT REJECTION
     Dosage: SEE IMAGE
     Route: 048
     Dates: start: 20041201, end: 20050616
  3. RAPAMUNE [Suspect]
     Indication: PROPHYLAXIS AGAINST TRANSPLANT REJECTION
     Dosage: SEE IMAGE
     Route: 048
     Dates: start: 20050617
  4. MYCOPHENOLATE MOFETIL (MYCOPHENOLATE MOFETIL, ) [Suspect]
     Indication: PROPHYLAXIS AGAINST TRANSPLANT REJECTION
     Dosage: SEE IMAGE
     Route: 048
     Dates: start: 20040101
  5. ZENAPAX [Suspect]
     Indication: PROPHYLAXIS AGAINST TRANSPLANT REJECTION
     Dosage: SEE IMAGE
     Route: 042
     Dates: start: 20041124, end: 20040101
  6. ZENAPAX [Suspect]
     Indication: PROPHYLAXIS AGAINST TRANSPLANT REJECTION
     Dosage: SEE IMAGE
     Route: 042
     Dates: start: 20040101, end: 20050120
  7. PREDNISONE [Concomitant]
  8. PREDNISONE [Concomitant]

REACTIONS (1)
  - TONGUE NEOPLASM MALIGNANT STAGE UNSPECIFIED [None]
